FAERS Safety Report 19687355 (Version 1)
Quarter: 2021Q3

REPORT INFORMATION
  Report Type: Spontaneous
  Country: CN (occurrence: CN)
  Receive Date: 20210812
  Receipt Date: 20210812
  Transmission Date: 20211014
  Serious: Yes (Other)
  Sender: FDA-Public Use
  Company Number: CN-ROCHE-2887890

PATIENT
  Age: 46 Year
  Sex: Female
  Weight: 51 kg

DRUGS (1)
  1. MABTHERA [Suspect]
     Active Substance: RITUXIMAB
     Indication: LYMPHOCYTIC LYMPHOMA
     Dosage: PUMP; INJECTION
     Route: 041
     Dates: start: 20210713, end: 20210713

REACTIONS (3)
  - Off label use [Unknown]
  - Chills [Recovering/Resolving]
  - Pyrexia [Recovering/Resolving]

NARRATIVE: CASE EVENT DATE: 20210713
